FAERS Safety Report 8257340-8 (Version None)
Quarter: 2012Q1

REPORT INFORMATION
  Report Type: 
  Country: None (occurrence: None)
  Receive Date: 20120330
  Receipt Date: 20120319
  Transmission Date: 20120608
  Serious: Yes (Hospitalization, Other)
  Sender: FDA-Public Use
  Company Number: FK201200852

PATIENT
  Age: 14 Day
  Sex: Male

DRUGS (3)
  1. PYRIDOXINE HYDROCHLORIDE INJ [Suspect]
     Indication: PROPHYLAXIS
     Dosage: 40 MG, TID, ORAL
     Route: 048
  2. PYRIDOXAL 5-PHOSPHATE [Concomitant]
  3. PYRIDOXINE HYDROCHLORIDE INJ [Suspect]
     Indication: PROPHYLAXIS
     Dosage: 100 MG, DAY 14: SINGLE BOLUS DOSE, INTRAVENOUS BOLUS, 100 MG, STARTING DAY 19 TO UNKNOWN, INTRAVENOU
     Route: 040

REACTIONS (10)
  - TOXICITY TO VARIOUS AGENTS [None]
  - PALLOR [None]
  - FEEDING DISORDER NEONATAL [None]
  - NEONATAL RESPIRATORY ACIDOSIS [None]
  - RESPIRATORY FAILURE [None]
  - ACCIDENTAL OVERDOSE [None]
  - OPISTHOTONUS [None]
  - STATUS EPILEPTICUS [None]
  - MATERNAL DRUGS AFFECTING FOETUS [None]
  - BRAIN OEDEMA [None]
